FAERS Safety Report 5083720-8 (Version None)
Quarter: 2006Q3

REPORT INFORMATION
  Report Type: 
  Country: None (occurrence: None)
  Receive Date: 20060818
  Receipt Date: 20060808
  Transmission Date: 20061208
  Serious: Yes (Life-Threatening, Hospitalization)
  Sender: FDA-Public Use
  Company Number: PL-ROCHE-459030

PATIENT
  Age: 75 Year
  Sex: Male
  Weight: 74 kg

DRUGS (3)
  1. XELODA [Suspect]
     Indication: DRUG USE FOR UNKNOWN INDICATION
     Dosage: STRENGTH REPORTED AS 500 AMD 150 MG INDICATION REPORTED AS CA.SIGMO-RECTI
     Route: 048
     Dates: start: 20060428, end: 20060511
  2. XELODA [Suspect]
     Dosage: STRENGTH REPORTED AS 500 AMD 150 MG INDICATION REPORTED AS CA.SIGMO-RECTI
     Route: 048
     Dates: start: 20060519, end: 20060602
  3. METOCLOPRAMID [Concomitant]
     Dosage: INDICATION REPORTED AS ANTIEMETIC
     Route: 048
     Dates: start: 20060428, end: 20060602

REACTIONS (5)
  - DIARRHOEA [None]
  - GASTROINTESTINAL INFLAMMATION [None]
  - OEDEMA PERIPHERAL [None]
  - PALMAR-PLANTAR ERYTHRODYSAESTHESIA SYNDROME [None]
  - STOMATITIS [None]
